FAERS Safety Report 14170684 (Version 4)
Quarter: 2018Q1

REPORT INFORMATION
  Report Type: Report from Study
  Country: US (occurrence: US)
  Receive Date: 20171108
  Receipt Date: 20180122
  Transmission Date: 20180508
  Serious: Yes (Hospitalization)
  Sender: FDA-Public Use
  Company Number: US-EISAI MEDICAL RESEARCH-EC-2017-031028

PATIENT
  Sex: Male
  Weight: 88 kg

DRUGS (28)
  1. ZANTAC [Concomitant]
     Active Substance: RANITIDINE HYDROCHLORIDE
  2. OXYCONTIN [Concomitant]
     Active Substance: OXYCODONE HYDROCHLORIDE
  3. PROCHLORPERAZINE MALEATE. [Concomitant]
     Active Substance: PROCHLORPERAZINE MALEATE
  4. AUGMENTIN [Concomitant]
     Active Substance: AMOXICILLIN\CLAVULANATE POTASSIUM
  5. AMOXICILLIN. [Concomitant]
     Active Substance: AMOXICILLIN
  6. CITALOPRAM [Concomitant]
     Active Substance: CITALOPRAM HYDROBROMIDE
  7. XGEVA [Concomitant]
     Active Substance: DENOSUMAB
  8. SUTENT [Concomitant]
     Active Substance: SUNITINIB MALATE
  9. OXYCODONE-ACETAMINOPHEN [Concomitant]
     Active Substance: ACETAMINOPHEN\OXYCODONE HYDROCHLORIDE
  10. DRONABINOL. [Concomitant]
     Active Substance: DRONABINOL
  11. LASIX [Concomitant]
     Active Substance: FUROSEMIDE
  12. VITAMIN D [Concomitant]
     Active Substance: CHOLECALCIFEROL
  13. LENVIMA [Suspect]
     Active Substance: LENVATINIB
     Indication: RENAL CANCER
     Route: 048
     Dates: start: 20170831
  14. PREDNISOLONE. [Concomitant]
     Active Substance: PREDNISOLONE
  15. ALBUTEROL. [Concomitant]
     Active Substance: ALBUTEROL
  16. SENNA [Concomitant]
     Active Substance: SENNA LEAF\SENNOSIDES\SENNOSIDES A AND B
  17. TYLENOL [Concomitant]
     Active Substance: ACETAMINOPHEN
  18. MEDICAL MAJIJUANA [Concomitant]
  19. PROAIR HFA [Concomitant]
     Active Substance: ALBUTEROL SULFATE
  20. LOVENOX [Concomitant]
     Active Substance: ENOXAPARIN SODIUM
  21. NEOMYCIN-POLYMYXIN [Concomitant]
  22. AMLODIPINE [Concomitant]
     Active Substance: AMLODIPINE BESYLATE
  23. ZOFRAN [Concomitant]
     Active Substance: ONDANSETRON HYDROCHLORIDE
  24. AFINITOR [Concomitant]
     Active Substance: EVEROLIMUS
  25. CALCIUM [Concomitant]
     Active Substance: CALCIUM
  26. ALPRAZOLAM. [Concomitant]
     Active Substance: ALPRAZOLAM
  27. METOPROLOL. [Concomitant]
     Active Substance: METOPROLOL
  28. GABAPENTIN. [Concomitant]
     Active Substance: GABAPENTIN

REACTIONS (6)
  - Decreased appetite [Not Recovered/Not Resolved]
  - Urinary tract infection [Unknown]
  - Hypertension [Not Recovered/Not Resolved]
  - Tooth infection [Not Recovered/Not Resolved]
  - Diarrhoea [Unknown]
  - Nausea [Unknown]

NARRATIVE: CASE EVENT DATE: 2017
